FAERS Safety Report 12831841 (Version 2)
Quarter: 2016Q4

REPORT INFORMATION
  Report Type: Report from Study
  Country: US (occurrence: US)
  Receive Date: 20161010
  Receipt Date: 20161206
  Transmission Date: 20170207
  Serious: Yes (Hospitalization, Other)
  Sender: FDA-Public Use
  Company Number: US-ROCHE-1377013

PATIENT
  Age: 47 Year
  Sex: Female
  Weight: 48.5 kg

DRUGS (7)
  1. VELIPARIB [Suspect]
     Active Substance: VELIPARIB
     Dosage: 15/MAY/2014
     Route: 048
  2. PACLITAXEL. [Suspect]
     Active Substance: PACLITAXEL
     Indication: OVARIAN EPITHELIAL CANCER
     Dosage: LAST ADMINISTERED DATE: 13/FEB/2014
     Route: 042
     Dates: start: 20140122
  3. BEVACIZUMAB [Suspect]
     Active Substance: BEVACIZUMAB
     Indication: OVARIAN EPITHELIAL CANCER
     Dosage: LAST ADMINISTERED DATE: 13/FEB/2014 (OVER 30-90 MIN ON DAY 1) (ALSO RECEIVED ON 12/MAR/2014, 02/APR/
     Route: 042
     Dates: start: 20140212
  4. BEVACIZUMAB [Suspect]
     Active Substance: BEVACIZUMAB
     Dosage: 30/OCT/2014, 20/NOV/2014, 02/JAN/2015, 22/JAN/2015, 13/FEB/2015, 06/MAR/2015, 27/MAR/2015, 17/APR/20
     Route: 042
  5. CARBOPLATIN. [Suspect]
     Active Substance: CARBOPLATIN
     Indication: OVARIAN EPITHELIAL CANCER
     Dosage: AUC=6, LAST ADMINISTERED DATE: 13/FEB/2014
     Route: 042
     Dates: start: 20140122
  6. VELIPARIB [Suspect]
     Active Substance: VELIPARIB
     Dosage: 12/MAR/2014, 02/APR/2014, 23/APR/2014
     Route: 048
  7. VELIPARIB [Suspect]
     Active Substance: VELIPARIB
     Indication: OVARIAN EPITHELIAL CANCER
     Dosage: LAST ADMINISTERED DATE: 20/FEB/2014. (ON DAYS 1-21)
     Route: 048
     Dates: start: 20140122

REACTIONS (6)
  - White blood cell count decreased [Unknown]
  - Nausea [Unknown]
  - Neutrophil count decreased [Unknown]
  - Febrile neutropenia [Not Recovered/Not Resolved]
  - Arthritis [Unknown]
  - Platelet count decreased [Unknown]

NARRATIVE: CASE EVENT DATE: 20140220
